FAERS Safety Report 4806279-6 (Version None)
Quarter: 2005Q4

REPORT INFORMATION
  Report Type: 
  Country: None (occurrence: None)
  Receive Date: 20051021
  Receipt Date: 20051011
  Transmission Date: 20060501
  Serious: Yes (Hospitalization)
  Sender: FDA-Public Use
  Company Number: US-ABBOTT-05P-163-0313440-00

PATIENT
  Age: 85 Year
  Sex: Male

DRUGS (2)
  1. LEXAPRO [Suspect]
     Indication: DEPRESSION
     Route: 048
     Dates: start: 20050801
  2. LEXAPRO [Suspect]
     Route: 048

REACTIONS (2)
  - CONVULSION [None]
  - MENTAL STATUS CHANGES [None]
